FAERS Safety Report 10111113 (Version 1)
Quarter: 2014Q2

REPORT INFORMATION
  Report Type: Spontaneous
  Country: US (occurrence: None)
  Receive Date: 20140421
  Receipt Date: 20140421
  Transmission Date: 20141212
  Serious: No
  Sender: FDA-Public Use
  Company Number: AEGR000257

PATIENT
  Age: 51 Year
  Sex: Female
  Weight: 72.1 kg

DRUGS (11)
  1. JUXTAPID (LOMITAPIDE) CAPSULE, 5 MG [Suspect]
     Indication: TYPE IIA HYPERLIPIDAEMIA
     Route: 048
     Dates: start: 20140103
  2. OMEGA 3 (FISH OIL) [Concomitant]
  3. VITAMIN E (TOCOPHERYL ACID SUCCINATE) [Concomitant]
  4. MULTIVITAMIN (VITAMINS NOS) [Concomitant]
  5. LIPITOR (ATORVASTATIN CALCIUM) [Concomitant]
  6. TRIAMTERENE AND HYDROCHLORIDE (HYDROCHLORIDE, TRIAMTERENE) [Concomitant]
  7. DIGOXIN (DIGOXIN) [Concomitant]
  8. IMDUR (ISOSORBIDE MONONITRATE) [Concomitant]
  9. LEVOTHYROXINE SODIUM) [Concomitant]
  10. ASA (ACETYLSALICYLIC ACID) [Concomitant]
  11. BYSTOLIC (NEBIVOLOL HYDROCHLORIDE) [Concomitant]

REACTIONS (6)
  - Throat irritation [None]
  - Chills [None]
  - Musculoskeletal stiffness [None]
  - Pain [None]
  - Drug dose omission [None]
  - Pyrexia [None]
